FAERS Safety Report 9288896 (Version 1)
Quarter: 2013Q2

REPORT INFORMATION
  Report Type: Spontaneous
  Country: US (occurrence: US)
  Receive Date: 20130514
  Receipt Date: 20130514
  Transmission Date: 20140414
  Serious: No
  Sender: FDA-Public Use
  Company Number: US-ASTRAZENECA-2013SE31307

PATIENT
  Sex: Male

DRUGS (2)
  1. NEXIUM [Suspect]
     Indication: GASTROOESOPHAGEAL REFLUX DISEASE
     Dosage: TAKES ANOTHER NEXIUM IN THE EVENING IF HAVING SPICY FOOD OR ALCOHOL
     Route: 048
  2. NEXIUM [Suspect]
     Indication: GASTROOESOPHAGEAL REFLUX DISEASE
     Dosage: TAKES ANOTHER NEXIUM IN THE EVENING IF HAVING SPICY FOOD OR ALCOHOL
     Route: 048

REACTIONS (2)
  - Disease recurrence [Unknown]
  - Drug dose omission [Unknown]
